FAERS Safety Report 7310639-1 (Version None)
Quarter: 2011Q1

REPORT INFORMATION
  Report Type: 
  Country: None (occurrence: None)
  Receive Date: 20110224
  Receipt Date: 20100618
  Transmission Date: 20110831
  Serious: No
  Sender: FDA-Public Use
  Company Number: US-BRISTOL-MYERS SQUIBB COMPANY-15131816

PATIENT
  Age: 45 Year
  Sex: Male

DRUGS (6)
  1. GLUCOPHAGE [Suspect]
     Indication: DIABETES MELLITUS
  2. LANTUS [Concomitant]
  3. LISINOPRIL [Concomitant]
  4. ATENOLOL [Concomitant]
  5. SIMVASTATIN [Concomitant]
  6. METFORMIN HCL [Suspect]
     Indication: TYPE 2 DIABETES MELLITUS
     Dosage: THE TABLET DESCRIPTION HAD MARKINGS AS BS-6063-500

REACTIONS (1)
  - MEDICATION RESIDUE [None]
